FAERS Safety Report 13501512 (Version 1)
Quarter: 2017Q2

REPORT INFORMATION
  Report Type: Spontaneous
  Country: CA (occurrence: CA)
  Receive Date: 20170501
  Receipt Date: 20170501
  Transmission Date: 20170830
  Serious: Yes (Other)
  Sender: FDA-Public Use
  Company Number: CA-ENDO PHARMACEUTICALS INC-2017-002558

PATIENT
  Age: 62 Year
  Sex: Male

DRUGS (1)
  1. XIAFLEX [Suspect]
     Active Substance: COLLAGENASE CLOSTRIDIUM HISTOLYTICUM
     Indication: DUPUYTREN^S CONTRACTURE
     Dosage: 0.58 MG, SINGLE
     Route: 026
     Dates: start: 20170320, end: 20170320

REACTIONS (4)
  - Surgery [Unknown]
  - Laceration [Unknown]
  - Pain in extremity [Not Recovered/Not Resolved]
  - Axillary pain [Not Recovered/Not Resolved]

NARRATIVE: CASE EVENT DATE: 201703
